FAERS Safety Report 16788848 (Version 5)
Quarter: 2022Q1

REPORT INFORMATION
  Report Type: Report from Study
  Country: JP (occurrence: JP)
  Receive Date: 20190910
  Receipt Date: 20220224
  Transmission Date: 20220423
  Serious: Yes (Other)
  Sender: FDA-Public Use
  Company Number: JP-ALEXION PHARMACEUTICALS INC.-A201913322

PATIENT
  Age: 0 Year
  Sex: Female
  Weight: 4.504 kg

DRUGS (2)
  1. STRENSIQ [Suspect]
     Active Substance: ASFOTASE ALFA
     Indication: Hypophosphatasia
     Dosage: 2 MG/KG, TIW
     Route: 058
     Dates: start: 20181019
  2. GLYCERINE BORAX [Concomitant]
     Indication: Hypophosphatasia
     Dosage: 5 ML, 1-3 TIMES A DAY
     Route: 054
     Dates: start: 20181020

REACTIONS (1)
  - Deafness [Not Recovered/Not Resolved]

NARRATIVE: CASE EVENT DATE: 20190715
